FAERS Safety Report 15783479 (Version 1)
Quarter: 2019Q1

REPORT INFORMATION
  Report Type: Spontaneous
  Country: US (occurrence: US)
  Receive Date: 20190102
  Receipt Date: 20190102
  Transmission Date: 20190417
  Serious: Yes (Other)
  Sender: FDA-Public Use
  Company Number: US-SA-2018SA397511

PATIENT
  Sex: Female

DRUGS (6)
  1. COREG [Concomitant]
     Active Substance: CARVEDILOL
     Dosage: 12.5 MG, BID
  2. VITAMIN D [Concomitant]
     Active Substance: CHOLECALCIFEROL
  3. PRALUENT [Suspect]
     Active Substance: ALIROCUMAB
     Indication: BLOOD CHOLESTEROL INCREASED
     Dosage: 75 MG, QOW
     Route: 058
     Dates: start: 201612
  4. SYNTHROID [Concomitant]
     Active Substance: LEVOTHYROXINE SODIUM
     Dosage: 0.25 MG, QD
  5. VENLAFAXINE [Concomitant]
     Active Substance: VENLAFAXINE HYDROCHLORIDE
     Dosage: 75 MG, QD
  6. ATORVASTATIN [Suspect]
     Active Substance: ATORVASTATIN
     Dosage: 10 MG

REACTIONS (9)
  - Myalgia [Unknown]
  - Visual impairment [Unknown]
  - Rhinorrhoea [Unknown]
  - Ear discomfort [Unknown]
  - Oropharyngeal pain [Unknown]
  - Salivary hypersecretion [Unknown]
  - Choking sensation [Unknown]
  - Capillary fragility [Unknown]
  - Eye haemorrhage [Unknown]

NARRATIVE: CASE EVENT DATE: 201801
